FAERS Safety Report 9399568 (Version 1)
Quarter: 2013Q3

REPORT INFORMATION
  Report Type: Spontaneous
  Country: US (occurrence: US)
  Receive Date: 20130715
  Receipt Date: 20130715
  Transmission Date: 20140515
  Serious: No
  Sender: FDA-Public Use
  Company Number: US-BIOGENIDEC-2013BI062964

PATIENT
  Sex: Male

DRUGS (1)
  1. TYSABRI [Suspect]
     Indication: MULTIPLE SCLEROSIS
     Route: 042

REACTIONS (5)
  - Feeling hot [Unknown]
  - Palpitations [Unknown]
  - Abdominal discomfort [Unknown]
  - Weight decreased [Unknown]
  - Nausea [Unknown]
